FAERS Safety Report 7526229-1 (Version None)
Quarter: 2011Q2

REPORT INFORMATION
  Report Type: 
  Country: None (occurrence: None)
  Receive Date: 20110603
  Receipt Date: 20110603
  Transmission Date: 20111010
  Serious: No
  Sender: FDA-Public Use
  Company Number: None

PATIENT
  Sex: Female
  Weight: 67.3 kg

DRUGS (1)
  1. HIZENTRA [Suspect]
     Indication: SELECTIVE IGA IMMUNODEFICIENCY
     Dosage: INFUSE 6GMS (30ML) WEEKLY SUB-Q
     Route: 058
     Dates: start: 20110401

REACTIONS (1)
  - BLOOD PRESSURE INCREASED [None]
